FAERS Safety Report 11117624 (Version 1)
Quarter: 2015Q2

REPORT INFORMATION
  Report Type: Spontaneous
  Country: JP (occurrence: JP)
  Receive Date: 20150517
  Receipt Date: 20150517
  Transmission Date: 20150821
  Serious: Yes (Hospitalization)
  Sender: FDA-Public Use
  Company Number: JP-MYLANLABS-2015M1015902

PATIENT

DRUGS (3)
  1. AMPICILLIN [Suspect]
     Active Substance: AMPICILLIN
     Indication: ACUTE FOCAL BACTERIAL NEPHRITIS
     Route: 065
  2. MEROPENEM. [Concomitant]
     Active Substance: MEROPENEM
     Indication: ACUTE FOCAL BACTERIAL NEPHRITIS
     Route: 065
  3. LEVOFLOXACIN. [Concomitant]
     Active Substance: LEVOFLOXACIN
     Indication: ACUTE FOCAL BACTERIAL NEPHRITIS
     Route: 065

REACTIONS (1)
  - Tubulointerstitial nephritis [Recovered/Resolved]
